FAERS Safety Report 13134130 (Version 1)
Quarter: 2017Q1

REPORT INFORMATION
  Report Type: Report from Study
  Country: IT (occurrence: IT)
  Receive Date: 20170120
  Receipt Date: 20170120
  Transmission Date: 20170428
  Serious: Yes (Hospitalization)
  Sender: FDA-Public Use
  Company Number: IT-TEVA-729880ACC

PATIENT
  Age: 36 Year
  Sex: Female

DRUGS (2)
  1. COPAXONE [Suspect]
     Active Substance: GLATIRAMER ACETATE
     Indication: MULTIPLE SCLEROSIS
     Dates: start: 201610
  2. MGKVIS [Concomitant]
     Indication: HEADACHE
     Route: 048

REACTIONS (3)
  - Blood pressure increased [Recovered/Resolved]
  - Vomiting [Recovered/Resolved]
  - Polymenorrhoea [Recovered/Resolved]

NARRATIVE: CASE EVENT DATE: 20170103
